FAERS Safety Report 10270910 (Version 4)
Quarter: 2016Q1

REPORT INFORMATION
  Report Type: Spontaneous
  Country: US (occurrence: US)
  Receive Date: 20140701
  Receipt Date: 20160301
  Transmission Date: 20160525
  Serious: Yes (Hospitalization, Other)
  Sender: FDA-Public Use
  Company Number: US-GLAXOSMITHKLINE-A1079064A

PATIENT
  Age: 82 Year
  Sex: Female

DRUGS (2)
  1. ADVAIR HFA [Suspect]
     Active Substance: FLUTICASONE PROPIONATE\SALMETEROL XINAFOATE
     Indication: CHRONIC OBSTRUCTIVE PULMONARY DISEASE
     Dosage: 250/50 MCG AT UNKNOWN DOSING
     Route: 055
     Dates: start: 20040316
  2. ADVAIR HFA [Suspect]
     Active Substance: FLUTICASONE PROPIONATE\SALMETEROL XINAFOATE
     Dosage: 1 PUFF(S), BID
     Route: 055

REACTIONS (9)
  - Hip fracture [Unknown]
  - Respiratory tract infection [Unknown]
  - Fall [Recovering/Resolving]
  - Myocardial infarction [Unknown]
  - Dyspnoea [Unknown]
  - Eye operation [Unknown]
  - Lung neoplasm malignant [Unknown]
  - Limb injury [Unknown]
  - Malaise [Not Recovered/Not Resolved]

NARRATIVE: CASE EVENT DATE: 201602
